FAERS Safety Report 4866365-1 (Version None)
Quarter: 2005Q4

REPORT INFORMATION
  Report Type: 
  Country: None (occurrence: None)
  Receive Date: 20051227
  Receipt Date: 20051216
  Transmission Date: 20060501
  Serious: Yes (Hospitalization)
  Sender: FDA-Public Use
  Company Number: US-MERCK-0512USA03170

PATIENT
  Age: 66 Year
  Sex: Male

DRUGS (11)
  1. ZOCOR [Suspect]
     Indication: HYPERLIPIDAEMIA
     Route: 048
     Dates: start: 20020101, end: 20031001
  2. PRINIVIL [Concomitant]
     Route: 048
  3. LOPRESSOR [Concomitant]
     Route: 048
  4. PLAVIX [Concomitant]
     Route: 048
  5. ASPIRIN [Concomitant]
     Route: 048
  6. GLYBURIDE [Concomitant]
     Route: 048
  7. GLUCOPHAGE [Concomitant]
     Route: 048
  8. AMARYL [Concomitant]
     Route: 065
     Dates: start: 20030730
  9. AMARYL [Concomitant]
     Route: 065
     Dates: end: 20030729
  10. ATENOLOL [Concomitant]
     Route: 065
  11. SAW PALMETTO [Concomitant]
     Indication: BENIGN PROSTATIC HYPERPLASIA
     Route: 065

REACTIONS (20)
  - ASTHENIA [None]
  - CARDIAC FAILURE CONGESTIVE [None]
  - CELLULITIS [None]
  - DRUG ADMINISTRATION ERROR [None]
  - ECZEMA [None]
  - EXTRADURAL ABSCESS [None]
  - FALL [None]
  - HAEMODIALYSIS [None]
  - HALLUCINATION [None]
  - HYPERGLYCAEMIA [None]
  - INSOMNIA [None]
  - JOINT CONTRACTURE [None]
  - MENTAL STATUS CHANGES [None]
  - METABOLIC ACIDOSIS [None]
  - RENAL FAILURE ACUTE [None]
  - RENAL TUBULAR NECROSIS [None]
  - RESPIRATORY FAILURE [None]
  - RHABDOMYOLYSIS [None]
  - SEPSIS [None]
  - STAPHYLOCOCCAL INFECTION [None]
